FAERS Safety Report 14804767 (Version 1)
Quarter: 2018Q2

REPORT INFORMATION
  Report Type: Report from Study
  Country: US (occurrence: US)
  Receive Date: 20180425
  Receipt Date: 20180425
  Transmission Date: 20180711
  Serious: Yes (Hospitalization, Other)
  Sender: FDA-Public Use
  Company Number: US-ASPEN-GLO2017US003959

PATIENT
  Age: 4 Year
  Sex: Male
  Weight: 18.5 kg

DRUGS (14)
  1. VINCRISTINE [Suspect]
     Active Substance: VINCRISTINE
     Indication: ACUTE LYMPHOCYTIC LEUKAEMIA
     Dosage: 1.2 MG
     Route: 037
     Dates: start: 20170412
  2. PEGASPARGASE [Suspect]
     Active Substance: PEGASPARGASE
     Indication: ACUTE LYMPHOCYTIC LEUKAEMIA
     Dosage: 1975 IU
     Route: 042
     Dates: start: 20170415
  3. DEXAMETHASONE. [Suspect]
     Active Substance: DEXAMETHASONE
     Indication: ACUTE LYMPHOCYTIC LEUKAEMIA
     Dosage: 3.8 MG, BID
     Route: 048
     Dates: start: 20170412, end: 20170503
  4. METHOTREXATE. [Suspect]
     Active Substance: METHOTREXATE
     Indication: ACUTE LYMPHOCYTIC LEUKAEMIA
     Dosage: 12 MG
     Route: 037
     Dates: start: 20170412
  5. DOXORUBICIN [Suspect]
     Active Substance: DOXORUBICIN
     Indication: ACUTE LYMPHOCYTIC LEUKAEMIA
     Dosage: 19 MG
     Route: 042
     Dates: start: 20170412, end: 20170420
  6. METHOTREXATE. [Suspect]
     Active Substance: METHOTREXATE
     Dosage: 12 MG
     Route: 037
     Dates: start: 20170510, end: 20170517
  7. CYTARABINE. [Suspect]
     Active Substance: CYTARABINE
     Indication: ACUTE LYMPHOCYTIC LEUKAEMIA
     Dosage: 56 MG, QD
     Route: 058
     Dates: start: 20170510
  8. VINCRISTINE [Suspect]
     Active Substance: VINCRISTINE
     Dosage: 1.1 MG
     Route: 042
     Dates: start: 20170514, end: 20170524
  9. CYCLOPHOSPHAMIDE. [Suspect]
     Active Substance: CYCLOPHOSPHAMIDE
     Indication: ACUTE LYMPHOCYTIC LEUKAEMIA
     Dosage: 250 MG, SINGLE
     Route: 042
     Dates: start: 20170510, end: 20170510
  10. RUXOLITINIB [Suspect]
     Active Substance: RUXOLITINIB
     Indication: B PRECURSOR TYPE ACUTE LEUKAEMIA
     Dosage: 30 MG, BID
     Route: 048
     Dates: start: 20170412
  11. PEGASPARGASE [Suspect]
     Active Substance: PEGASPARGASE
     Dosage: 1900 IU, SINGLE
     Route: 042
     Dates: start: 20170524, end: 20170524
  12. TIOGUANINE [Suspect]
     Active Substance: THIOGUANINE ANHYDROUS
     Indication: ACUTE LYMPHOCYTIC LEUKAEMIA
     Dosage: 40 MG
     Route: 048
     Dates: start: 20170510
  13. DEXAMETHASONE. [Suspect]
     Active Substance: DEXAMETHASONE
     Dosage: 4 MG, BID
     Route: 048
     Dates: start: 20170426
  14. TIOGUANINE [Suspect]
     Active Substance: THIOGUANINE ANHYDROUS
     Dosage: 60 MG
     Route: 048

REACTIONS (5)
  - Bacterial sepsis [Recovered/Resolved]
  - Mucosal inflammation [Recovered/Resolved]
  - Vomiting [Recovered/Resolved]
  - Bacterial infection [Recovering/Resolving]
  - Dehydration [Recovered/Resolved]

NARRATIVE: CASE EVENT DATE: 201705
